FAERS Safety Report 6354668-3 (Version None)
Quarter: 2009Q3

REPORT INFORMATION
  Report Type: 
  Country: None (occurrence: None)
  Receive Date: 20090909
  Receipt Date: 20090831
  Transmission Date: 20100115
  Serious: Yes (Hospitalization)
  Sender: FDA-Public Use
  Company Number: US-2009-00221

PATIENT
  Age: 56 Year
  Sex: Male

DRUGS (6)
  1. PRAVASTATIN SODIUM [Suspect]
     Dosage: DOSE INCREASED FROM 40 TO 80 MG QD 4 MONTHS PRIOR TO EVENT
  2. ATAZANAVIR (400 MILLIGRAM) [Concomitant]
  3. RITONAVIR (100 MILLIGRAM) [Concomitant]
  4. EMTRICITABINE (200 MILLIGRAM) [Concomitant]
  5. TENOFOVIR (300 MILLIGRAM) [Concomitant]
  6. CLOPIDOGREL (75 MILLIGRAM) [Concomitant]

REACTIONS (6)
  - ALANINE AMINOTRANSFERASE INCREASED [None]
  - ASPARTATE AMINOTRANSFERASE INCREASED [None]
  - ERYTHEMA [None]
  - OEDEMA [None]
  - RENAL FAILURE ACUTE [None]
  - RHABDOMYOLYSIS [None]
